FAERS Safety Report 9119529 (Version 1)
Quarter: 2013Q1

REPORT INFORMATION
  Report Type: Spontaneous
  Country: GB (occurrence: GB)
  Receive Date: 20130207
  Receipt Date: 20130207
  Transmission Date: 20140127
  Serious: Yes (Hospitalization)
  Sender: FDA-Public Use
  Company Number: GB-MYLANLABS-2013S1001932

PATIENT
  Age: 90 Year
  Sex: Female

DRUGS (1)
  1. GALANTAMINE [Suspect]
     Indication: COGNITIVE DISORDER
     Route: 048

REACTIONS (1)
  - Hepatitis [Recovering/Resolving]
